FAERS Safety Report 7962156-3 (Version None)
Quarter: 2011Q4

REPORT INFORMATION
  Report Type: 
  Country: None (occurrence: None)
  Receive Date: 20111207
  Receipt Date: 20111202
  Transmission Date: 20120403
  Serious: Yes (Death, Hospitalization, Other)
  Sender: FDA-Public Use
  Company Number: IT-BRISTOL-MYERS SQUIBB COMPANY-16173999

PATIENT
  Age: 84 Year
  Sex: Female

DRUGS (7)
  1. NORVASC [Concomitant]
  2. PIPERACILLIN AND TAZOBACTAM [Concomitant]
     Indication: PYREXIA
  3. MUCOSOLVON [Suspect]
  4. COUMADIN [Suspect]
     Indication: ATRIAL FIBRILLATION
     Dosage: 1DF:1UNITS
     Route: 048
     Dates: start: 20080101, end: 20110511
  5. SEROQUEL [Concomitant]
  6. LASIX [Concomitant]
  7. LANOXIN [Concomitant]
     Indication: CARDIAC FAILURE

REACTIONS (4)
  - TONGUE HAEMORRHAGE [None]
  - DRUG INTERACTION [None]
  - DEEP VEIN THROMBOSIS [None]
  - INTERNATIONAL NORMALISED RATIO INCREASED [None]
